FAERS Safety Report 6212647-0 (Version None)
Quarter: 2009Q2

REPORT INFORMATION
  Report Type: 
  Country: None (occurrence: None)
  Receive Date: 20090529
  Receipt Date: 20090513
  Transmission Date: 20091009
  Serious: Yes (Other)
  Sender: FDA-Public Use
  Company Number: GB-DEXPHARM-20090744

PATIENT
  Age: 69 Year
  Sex: Male

DRUGS (5)
  1. CORSODYL ACTIVE SUBSTANCES: CHLORHEXIDINE GLUCONATE [Suspect]
     Route: 048
     Dates: start: 20090201
  2. BENDROFLUMETHIAZIDE [Concomitant]
  3. FELODIPINE [Concomitant]
  4. NEOCLARITYN [Concomitant]
  5. SINTHROME [Concomitant]

REACTIONS (1)
  - INTERNATIONAL NORMALISED RATIO ABNORMAL [None]
